FAERS Safety Report 9317922 (Version 2)
Quarter: 2013Q2

REPORT INFORMATION
  Report Type: Spontaneous
  Country: IT (occurrence: IT)
  Receive Date: 20130530
  Receipt Date: 20130602
  Transmission Date: 20140414
  Serious: Yes (Other)
  Sender: FDA-Public Use
  Company Number: IT-BRISTOL-MYERS SQUIBB COMPANY-18770297

PATIENT
  Age: 80 Year
  Sex: Female

DRUGS (2)
  1. COUMADIN [Suspect]
     Indication: HAEMORRHAGE
     Route: 048
     Dates: start: 20051206, end: 20121206
  2. CARDIOASPIRIN [Suspect]

REACTIONS (1)
  - Gastric disorder [Unknown]
